FAERS Safety Report 24090525 (Version 1)
Quarter: 2024Q3

REPORT INFORMATION
  Report Type: Spontaneous
  Country: US (occurrence: US)
  Receive Date: 20240715
  Receipt Date: 20240715
  Transmission Date: 20241016
  Serious: No
  Sender: ROCHE
  Company Number: US-ROCHE-10000019576

PATIENT
  Age: 14 Year
  Sex: Female

DRUGS (10)
  1. MYCOPHENOLATE MOFETIL [Suspect]
     Active Substance: MYCOPHENOLATE MOFETIL
     Indication: Prophylaxis against transplant rejection
     Route: 065
  2. TACROLIMUS [Suspect]
     Active Substance: TACROLIMUS
     Indication: Prophylaxis against transplant rejection
     Route: 065
  3. PREDNISONE [Concomitant]
     Active Substance: PREDNISONE
  4. AZATHIOPRINE [Concomitant]
     Active Substance: AZATHIOPRINE
  5. RITUXIMAB [Concomitant]
     Active Substance: RITUXIMAB
  6. BASILIXIMAB [Concomitant]
     Active Substance: BASILIXIMAB
  7. METHYLPREDNISOLONE [Concomitant]
     Active Substance: METHYLPREDNISOLONE
  8. CYCLOSPORINE [Concomitant]
     Active Substance: CYCLOSPORINE
  9. SIROLIMUS [Concomitant]
     Active Substance: SIROLIMUS
  10. ECULIZUMAB [Concomitant]
     Active Substance: ECULIZUMAB

REACTIONS (1)
  - Pneumonia [Recovered/Resolved]
